FAERS Safety Report 21148552 (Version 1)
Quarter: 2022Q3

REPORT INFORMATION
  Report Type: Report from Study
  Country: US (occurrence: US)
  Receive Date: 20220729
  Receipt Date: 20220729
  Transmission Date: 20221027
  Serious: Yes (Hospitalization, Other)
  Sender: FDA-Public Use
  Company Number: US-BRISTOL-MYERS SQUIBB COMPANY-2022-053172

PATIENT
  Age: 61 Year
  Sex: Male
  Weight: 82.55 kg

DRUGS (1)
  1. POMALYST [Suspect]
     Active Substance: POMALIDOMIDE
     Indication: Plasma cell myeloma
     Dosage: DAILY BEFORE BREAKFAST FOR 21 DAYS AND 7 DAYS OFF.?EXPIRY DATE (31-OCT-2025), BATCH NUMBER (C2507A)
     Route: 048
     Dates: start: 20190914

REACTIONS (3)
  - Adverse event [Unknown]
  - Fatigue [Unknown]
  - Nasal congestion [Unknown]
